FAERS Safety Report 9272419 (Version 1)
Quarter: 2013Q2

REPORT INFORMATION
  Report Type: Spontaneous
  Country: US (occurrence: US)
  Receive Date: 20130506
  Receipt Date: 20130506
  Transmission Date: 20140414
  Serious: No
  Sender: FDA-Public Use
  Company Number: US-ASTRAZENECA-2012SE94552

PATIENT
  Age: 67 Year
  Sex: Female

DRUGS (4)
  1. PRILOSEC OTC [Suspect]
     Route: 048
     Dates: start: 20121203
  2. LISINOPRIL [Concomitant]
  3. TYLENOL [Concomitant]
  4. VITAMINS [Concomitant]

REACTIONS (2)
  - Glossodynia [Recovered/Resolved]
  - Dysgeusia [Recovered/Resolved]
